FAERS Safety Report 11914287 (Version 2)
Quarter: 2016Q1

REPORT INFORMATION
  Report Type: Spontaneous
  Country: GB (occurrence: GB)
  Receive Date: 20160113
  Receipt Date: 20160331
  Transmission Date: 20160526
  Serious: Yes (Other)
  Sender: FDA-Public Use
  Company Number: GB-FRESENIUS KABI-FK201600096

PATIENT
  Age: 53 Year
  Sex: Male
  Weight: 105 kg

DRUGS (10)
  1. METRONIDAZOLE. [Concomitant]
     Active Substance: METRONIDAZOLE
     Indication: BRAIN ABSCESS
  2. HYOSCINE [Concomitant]
     Active Substance: SCOPOLAMINE
  3. ZAPONEX [Concomitant]
     Active Substance: CLOZAPINE
     Route: 048
     Dates: start: 20151214
  4. CLOZAPINE. [Concomitant]
     Active Substance: CLOZAPINE
     Dates: end: 20151210
  5. RANITIDINE [Concomitant]
     Active Substance: RANITIDINE\RANITIDINE HYDROCHLORIDE
     Dates: end: 20151210
  6. LEVOFLOXACIN (MANUFACTURER UNKNOWN) [Suspect]
     Active Substance: LEVOFLOXACIN
     Indication: LOWER RESPIRATORY TRACT INFECTION
     Route: 048
     Dates: start: 20151129, end: 20151206
  7. CEFTRIAXONE. [Concomitant]
     Active Substance: CEFTRIAXONE
  8. ZAPONEX [Concomitant]
     Active Substance: CLOZAPINE
     Indication: PSYCHOTIC DISORDER
     Route: 048
     Dates: start: 20150810, end: 20151210
  9. RIVAROXABAN [Suspect]
     Active Substance: RIVAROXABAN
     Indication: PULMONARY EMBOLISM
     Route: 048
     Dates: start: 20151130, end: 20151210
  10. PARACETAMOL [Concomitant]
     Active Substance: ACETAMINOPHEN

REACTIONS (7)
  - Gamma-glutamyltransferase increased [Recovering/Resolving]
  - Pulmonary embolism [Unknown]
  - Liver function test abnormal [Recovering/Resolving]
  - Blood alkaline phosphatase increased [Recovering/Resolving]
  - Alanine aminotransferase increased [Recovered/Resolved]
  - Platelet count increased [Not Recovered/Not Resolved]
  - Hepatitis acute [Recovering/Resolving]

NARRATIVE: CASE EVENT DATE: 20151201
